FAERS Safety Report 9772012 (Version 1)
Quarter: 2013Q4

REPORT INFORMATION
  Report Type: Spontaneous
  Country: MX (occurrence: None)
  Receive Date: 20131029
  Receipt Date: 20131029
  Transmission Date: 20140711
  Serious: Yes (Death, Disabling, Other)
  Sender: FDA-Public Use
  Company Number: ENTC2012-0067

PATIENT
  Age: 63 Year
  Sex: Female

DRUGS (1)
  1. STALEVO (LEVODOPA, CARBIDOPA, ENTACAPONE) [Suspect]
     Indication: PARKINSON^S DISEASE
     Dosage: 4 TABLETS (150/37.5/200 MG) PER DAY, ORAL
     Route: 048
     Dates: start: 200905, end: 201204

REACTIONS (13)
  - Drug ineffective [None]
  - Immobile [None]
  - Musculoskeletal stiffness [None]
  - Musculoskeletal stiffness [None]
  - Intervertebral disc displacement [None]
  - Terminal state [None]
  - Skin ulcer [None]
  - Pyrexia [None]
  - Respiratory arrest [None]
  - Cardiac arrest [None]
  - Muscular weakness [None]
  - Dysstasia [None]
  - Depressed mood [None]
